FAERS Safety Report 5056184-8 (Version None)
Quarter: 2006Q3

REPORT INFORMATION
  Report Type: 
  Country: None (occurrence: None)
  Receive Date: 20060720
  Receipt Date: 20060710
  Transmission Date: 20061208
  Serious: Yes (Hospitalization)
  Sender: FDA-Public Use
  Company Number: PHBS2006BR10479

PATIENT
  Age: 29 Year
  Sex: Female
  Weight: 58 kg

DRUGS (8)
  1. ZELMAC [Suspect]
     Indication: CONSTIPATION
     Dosage: 6 MG, BID
     Route: 048
  2. LUFTAL [Concomitant]
     Indication: FLATULENCE
     Dosage: 40 DRP, TID
     Route: 048
  3. ESXOR [Concomitant]
     Route: 048
  4. DICETEL [Concomitant]
  5. BUSCOPAN COMP. [Concomitant]
     Indication: PAIN
  6. NEXIUM [Concomitant]
     Indication: GASTRITIS
     Dosage: 40 MG, QD
     Route: 048
  7. MOTILIUM [Concomitant]
     Indication: REFLUX OESOPHAGITIS
     Dosage: 30 MG/DAY
     Route: 048
  8. FRONTAL [Concomitant]
     Indication: SLEEP DISORDER
     Route: 048

REACTIONS (4)
  - COELIAC DISEASE [None]
  - DIARRHOEA [None]
  - GASTRIC DISORDER [None]
  - LIVER DISORDER [None]
